FAERS Safety Report 16894796 (Version 1)
Quarter: 2019Q4

REPORT INFORMATION
  Report Type: Spontaneous
  Country: US (occurrence: US)
  Receive Date: 20190813
  Receipt Date: 20190813
  Transmission Date: 20200122
  Serious: Yes (Hospitalization)
  Sender: FDA-Public Use
  Company Number: None

PATIENT
  Age: 60 Year
  Sex: Female

DRUGS (1)
  1. IBRANCE [Suspect]
     Active Substance: PALBOCICLIB
     Dates: start: 20190305

REACTIONS (7)
  - Dyspepsia [None]
  - Renal artery stent placement [None]
  - Dehydration [None]
  - Blood potassium decreased [None]
  - Madarosis [None]
  - Diarrhoea [None]
  - Abdominal distension [None]

NARRATIVE: CASE EVENT DATE: 20190716
